FAERS Safety Report 4390357-2 (Version None)
Quarter: 2004Q2

REPORT INFORMATION
  Report Type: 
  Country: None (occurrence: None)
  Receive Date: 20040630
  Receipt Date: 20040625
  Transmission Date: 20050107
  Serious: Yes (Other)
  Sender: FDA-Public Use
  Company Number: ENT 2004-0124

PATIENT
  Sex: Female

DRUGS (2)
  1. COMTAN [Suspect]
     Dosage: ORAL
     Route: 048
  2. MADOPAR HBS [Concomitant]

REACTIONS (1)
  - HEPATITIS [None]
